FAERS Safety Report 6564896-X (Version None)
Quarter: 2010Q1

REPORT INFORMATION
  Report Type: 
  Country: None (occurrence: None)
  Receive Date: 20100201
  Receipt Date: 20100122
  Transmission Date: 20100710
  Serious: Yes (Hospitalization)
  Sender: FDA-Public Use
  Company Number: US-ABBOTT-10P-163-0621680-00

PATIENT
  Sex: Female

DRUGS (8)
  1. HUMIRA [Suspect]
     Indication: PSORIASIS
     Dates: start: 20090115
  2. LEVOTHYROXINE SODIUM [Concomitant]
     Indication: HYPOTHYROIDISM
  3. CLOBETASOL PROPIONATE [Concomitant]
     Indication: PSORIASIS
     Dosage: AS DIRECTED
     Route: 061
  4. SERTRALINE HCL [Concomitant]
     Indication: DRUG USE FOR UNKNOWN INDICATION
  5. NOVALOG [Concomitant]
     Indication: DIABETES MELLITUS
     Route: 058
  6. LANTUS [Concomitant]
     Indication: DIABETES MELLITUS
     Route: 058
  7. HYDROCODONE BITARTRATE + ACETAMINOPHEN [Concomitant]
     Indication: PAIN
  8. CYMBALTA [Concomitant]
     Indication: DRUG USE FOR UNKNOWN INDICATION

REACTIONS (3)
  - ABASIA [None]
  - APHASIA [None]
  - CEREBROVASCULAR ACCIDENT [None]
